FAERS Safety Report 9237008 (Version 3)
Quarter: 2013Q2

REPORT INFORMATION
  Report Type: Spontaneous
  Country: IT (occurrence: None)
  Receive Date: 20130415
  Receipt Date: 20130508
  Transmission Date: 20140414
  Serious: Yes (Hospitalization)
  Sender: FDA-Public Use
  Company Number: AUR-APL-2013-03069

PATIENT
  Age: 73 Year
  Sex: Female
  Weight: 102 kg

DRUGS (9)
  1. METFORMIN (METFORMIN) [Suspect]
     Indication: TYPE 2 DIABETES MELLITUS
     Dosage: 2000 MG (1000 MG, 2 IN 1 D)
     Route: 048
     Dates: start: 20110101, end: 20130324
  2. SOLOSA [Suspect]
     Indication: PRODUCT USED FOR UNKNOWN INDICATION
     Route: 048
     Dates: start: 20110101, end: 20130324
  3. CARDIOASPIRIN (ACETYLSALICYLIC ACID) [Concomitant]
  4. ZYLORIC (ALLOPURINOL) [Concomitant]
  5. TRIATEC (RAMIPRIL) [Concomitant]
  6. CORDARONE (AMIODARONE HYDROCHLORIDE)/ORAL/TABLET/200 MILLIGRAMS(S) [Concomitant]
  7. LASIX (FUROSEMIDE) [Concomitant]
  8. OMEPRAZOLE (OMEPRAZOLE) [Concomitant]
  9. MONOCINQUE (ISOSORBIDE MONONITRATE) [Concomitant]

REACTIONS (5)
  - Hypoglycaemia [None]
  - Confusional state [None]
  - Meningioma [None]
  - Chest X-ray abnormal [None]
  - Blood glucose increased [None]
